FAERS Safety Report 4988139-3 (Version None)
Quarter: 2006Q2

REPORT INFORMATION
  Report Type: 
  Country: None (occurrence: None)
  Receive Date: 20060501
  Receipt Date: 20051019
  Transmission Date: 20061013
  Serious: Yes (Death, Hospitalization)
  Sender: FDA-Public Use
  Company Number: PR-MERCK-0510USA08143

PATIENT
  Age: 70 Year
  Sex: Female
  Weight: 72 kg

DRUGS (7)
  1. NEURONTIN [Concomitant]
     Indication: CONVULSION
     Route: 065
     Dates: start: 20011009, end: 20020507
  2. VIOXX [Suspect]
     Indication: MYALGIA
     Route: 048
     Dates: start: 19990101, end: 20011101
  3. TRENTAL [Concomitant]
     Route: 065
     Dates: start: 19991009, end: 20000320
  4. TENORMIN [Concomitant]
     Indication: ANGINA PECTORIS
     Route: 065
     Dates: start: 19991009, end: 20020209
  5. PRAVACHOL [Concomitant]
     Indication: BLOOD CHOLESTEROL INCREASED
     Route: 065
     Dates: start: 19991009, end: 20020425
  6. ALPRAZOLAM [Concomitant]
     Indication: ANXIETY
     Route: 065
     Dates: start: 20000906, end: 20020425
  7. GLUCOVANCE [Concomitant]
     Indication: DIABETES MELLITUS
     Route: 065
     Dates: start: 20010712, end: 20020507

REACTIONS (6)
  - ABDOMINAL PAIN UPPER [None]
  - CARDIAC VALVE DISEASE [None]
  - CEREBROVASCULAR ACCIDENT [None]
  - CHEST PAIN [None]
  - DIABETES MELLITUS [None]
  - OSTEOPOROSIS [None]
